FAERS Safety Report 16767349 (Version 1)
Quarter: 2019Q3

REPORT INFORMATION
  Report Type: Spontaneous
  Country: GB (occurrence: GB)
  Receive Date: 20190903
  Receipt Date: 20190903
  Transmission Date: 20191005
  Serious: Yes (Hospitalization)
  Sender: FDA-Public Use
  Company Number: GB-TEVA-2019-GB-1100225

PATIENT
  Age: 75 Year
  Sex: Female

DRUGS (11)
  1. PERINDOPRIL [Suspect]
     Active Substance: PERINDOPRIL
     Route: 048
     Dates: end: 20190408
  2. COCODAMOL [Concomitant]
     Active Substance: ACETAMINOPHEN\CODEINE PHOSPHATE
     Dosage: 30/500
  3. LEVEMIR [Concomitant]
     Active Substance: INSULIN DETEMIR
  4. METFORMIN [Concomitant]
     Active Substance: METFORMIN HYDROCHLORIDE
  5. SPIRONOLACTONE. [Suspect]
     Active Substance: SPIRONOLACTONE
     Dosage: EACH MORNING
     Route: 048
     Dates: end: 20190408
  6. INDAPAMIDE. [Suspect]
     Active Substance: INDAPAMIDE
     Dosage: EACH MORNING
     Route: 048
     Dates: end: 20190408
  7. ATORVASTATIN [Concomitant]
     Active Substance: ATORVASTATIN
  8. WARFARIN [Concomitant]
     Active Substance: WARFARIN
  9. NOVORAPID [Concomitant]
     Active Substance: INSULIN ASPART
  10. ADIZEM [Concomitant]
     Active Substance: DILTIAZEM HYDROCHLORIDE
  11. LEVOTHYROXINE. [Concomitant]
     Active Substance: LEVOTHYROXINE

REACTIONS (5)
  - Vomiting [Unknown]
  - Anuria [Unknown]
  - Acute kidney injury [Recovered/Resolved]
  - Dehydration [Unknown]
  - Hypotension [Unknown]

NARRATIVE: CASE EVENT DATE: 20190408
